FAERS Safety Report 4737804-1 (Version None)
Quarter: 2005Q3

REPORT INFORMATION
  Report Type: 
  Country: None (occurrence: None)
  Receive Date: 20050802
  Receipt Date: 20050518
  Transmission Date: 20060218
  Serious: Yes (Death, Hospitalization)
  Sender: FDA-Public Use
  Company Number: J081-232-3706

PATIENT
  Age: 88 Year
  Sex: Female
  Weight: 46 kg

DRUGS (13)
  1. E2020(DONEPEZIL HYDROCHLORIDE) [Suspect]
     Indication: DEMENTIA ALZHEIMER'S TYPE
     Dosage: 3 MG, 1 IN 1 D, ORAL (SEE IMAGE)
     Route: 048
     Dates: start: 20041019, end: 20041101
  2. E2020(DONEPEZIL HYDROCHLORIDE) [Suspect]
     Indication: DEMENTIA ALZHEIMER'S TYPE
     Dosage: 3 MG, 1 IN 1 D, ORAL (SEE IMAGE)
     Route: 048
     Dates: start: 20041102, end: 20041129
  3. E2020(DONEPEZIL HYDROCHLORIDE) [Suspect]
     Indication: DEMENTIA ALZHEIMER'S TYPE
     Dosage: 3 MG, 1 IN 1 D, ORAL (SEE IMAGE)
     Route: 048
     Dates: start: 20041130, end: 20041203
  4. E2020(DONEPEZIL HYDROCHLORIDE) [Suspect]
     Indication: DEMENTIA ALZHEIMER'S TYPE
     Dosage: 3 MG, 1 IN 1 D, ORAL (SEE IMAGE)
     Route: 048
     Dates: start: 20041204, end: 20041220
  5. E2020(DONEPEZIL HYDROCHLORIDE) [Suspect]
     Indication: DEMENTIA ALZHEIMER'S TYPE
     Dosage: 3 MG, 1 IN 1 D, ORAL (SEE IMAGE)
     Route: 048
     Dates: start: 20041221, end: 20041230
  6. E2020(DONEPEZIL HYDROCHLORIDE) [Suspect]
     Indication: DEMENTIA ALZHEIMER'S TYPE
     Dosage: 3 MG, 1 IN 1 D, ORAL (SEE IMAGE)
     Route: 048
     Dates: start: 20041231, end: 20050214
  7. COROHERSER-R (DILTIAZEM HYDROCHLORIDE) [Concomitant]
  8. MUCOSOLATE L (AMBROXOL HYDROCHLORIDE) [Concomitant]
  9. AMOBAN (ZOPICLONE) [Concomitant]
  10. TIALAREAD (TIAPRIDE HYDROCHLORIDE) [Concomitant]
  11. NON-PYRINE PREPARATION FOR COLD SYNDROME [Concomitant]
  12. AMLODIPINE BESYLATE [Concomitant]
  13. FANMIL (DISOPYRAMIDE) [Concomitant]

REACTIONS (9)
  - ACUTE RESPIRATORY FAILURE [None]
  - BRONCHITIS ACUTE [None]
  - CARDIAC FAILURE [None]
  - DYSPNOEA [None]
  - FALL [None]
  - FEMUR FRACTURE [None]
  - PNEUMONIA [None]
  - PULMONARY INFARCTION [None]
  - TRICUSPID VALVE INCOMPETENCE [None]
